FAERS Safety Report 16934286 (Version 1)
Quarter: 2019Q4

REPORT INFORMATION
  Report Type: Spontaneous
  Country: JP (occurrence: JP)
  Receive Date: 20191018
  Receipt Date: 20191018
  Transmission Date: 20200122
  Serious: Yes (Hospitalization)
  Sender: FDA-Public Use
  Company Number: JP-TEVA-2019-JP-1125276

PATIENT
  Age: 52 Year
  Sex: Male

DRUGS (8)
  1. MIZORIBINE [Suspect]
     Active Substance: MIZORIBINE
     Indication: SYSTEMIC LUPUS ERYTHEMATOSUS
     Route: 065
  2. PREDNISOLONE. [Suspect]
     Active Substance: PREDNISOLONE
     Indication: RENAL FAILURE
     Dosage: 50 MILLIGRAM DAILY; UP TO 50 MG/D
     Route: 048
  3. CYCLOPHOSPHAMIDE. [Suspect]
     Active Substance: CYCLOPHOSPHAMIDE
     Indication: RENAL FAILURE
     Dosage: PULSE THERAPY
     Route: 042
  4. MIZORIBINE [Suspect]
     Active Substance: MIZORIBINE
     Dosage: 100 MILLIGRAM DAILY; AT THE TIME OF ADMISSION
     Route: 065
  5. TACROLIMUS. [Suspect]
     Active Substance: TACROLIMUS
     Indication: RENAL FAILURE
     Dosage: 2 MILLIGRAM DAILY;
     Route: 048
  6. CYCLOSPORINE. [Suspect]
     Active Substance: CYCLOSPORINE
     Indication: SYSTEMIC LUPUS ERYTHEMATOSUS
     Route: 065
  7. TACROLIMUS. [Suspect]
     Active Substance: TACROLIMUS
     Dosage: 2 MILLIGRAM DAILY; AT THE TIME OF ADMISSION
     Route: 065
  8. PREDNISOLONE. [Suspect]
     Active Substance: PREDNISOLONE
     Dosage: 6 MILLIGRAM DAILY; AT THE TIME OF ADMISSION
     Route: 065

REACTIONS (1)
  - Sweat gland tumour [Unknown]
